FAERS Safety Report 14274904 (Version 4)
Quarter: 2018Q2

REPORT INFORMATION
  Report Type: Spontaneous
  Country: US (occurrence: US)
  Receive Date: 20171212
  Receipt Date: 20180417
  Transmission Date: 20180711
  Serious: Yes (Hospitalization)
  Sender: FDA-Public Use
  Company Number: US-JNJFOC-20171137769

PATIENT
  Age: 24 Year
  Sex: Female

DRUGS (3)
  1. CLONAZEPAM. [Suspect]
     Active Substance: CLONAZEPAM
     Indication: PRODUCT USED FOR UNKNOWN INDICATION
     Route: 065
  2. APAP [Suspect]
     Active Substance: ACETAMINOPHEN
     Route: 065
  3. APAP [Suspect]
     Active Substance: ACETAMINOPHEN
     Indication: PRODUCT USED FOR UNKNOWN INDICATION
     Route: 065

REACTIONS (5)
  - Premature rupture of membranes [Unknown]
  - Depressed level of consciousness [Unknown]
  - Exposure during pregnancy [Unknown]
  - Unresponsive to stimuli [Unknown]
  - Overdose [Unknown]
